FAERS Safety Report 14016586 (Version 2)
Quarter: 2017Q4

REPORT INFORMATION
  Report Type: Spontaneous
  Country: JP (occurrence: JP)
  Receive Date: 20170927
  Receipt Date: 20171020
  Transmission Date: 20180321
  Serious: Yes (Death, Hospitalization, Other)
  Sender: FDA-Public Use
  Company Number: JP-ABBVIE-17P-087-2112895-00

PATIENT
  Age: 86 Year
  Sex: Male

DRUGS (3)
  1. LEUPRORELIN ACETATE [Suspect]
     Active Substance: LEUPROLIDE ACETATE
     Indication: PROSTATE CANCER
     Dosage: 11.25 MG, Q3MONTHS
     Route: 058
     Dates: start: 20141001
  2. LEUPRORELIN ACETATE [Suspect]
     Active Substance: LEUPROLIDE ACETATE
     Dosage: 11.25 MG, Q3MONTHS
     Route: 058
     Dates: start: 201606
  3. BICALUTAMIDE. [Concomitant]
     Active Substance: BICALUTAMIDE
     Indication: PRODUCT USED FOR UNKNOWN INDICATION
     Dosage: UNK
     Route: 048

REACTIONS (3)
  - Spinal compression fracture [Unknown]
  - Metastasis [Fatal]
  - Prostatic specific antigen increased [Unknown]

NARRATIVE: CASE EVENT DATE: 20160101
